FAERS Safety Report 11276903 (Version 2)
Quarter: 2015Q3

REPORT INFORMATION
  Report Type: Report from Study
  Country: ES (occurrence: ES)
  Receive Date: 20150716
  Receipt Date: 20150824
  Transmission Date: 20151125
  Serious: Yes (Other)
  Sender: FDA-Public Use
  Company Number: PHHY2015ES084744

PATIENT
  Age: 54 Year
  Sex: Male

DRUGS (6)
  1. SIMVASTATINA [Concomitant]
     Active Substance: SIMVASTATIN
     Indication: PRODUCT USED FOR UNKNOWN INDICATION
     Dosage: 40 MG, UNK, 240 DAYS
     Route: 065
  2. VALSARTAN. [Concomitant]
     Active Substance: VALSARTAN
     Indication: PRODUCT USED FOR UNKNOWN INDICATION
     Dosage: 15 MG, UNK, 1825 DAYS
     Route: 065
  3. EXTAVIA [Suspect]
     Active Substance: INTERFERON BETA-1B
     Indication: MULTIPLE SCLEROSIS
     Dosage: 250 UG, UNK, 62 MONTHS
     Route: 058
     Dates: start: 20100422
  4. ASPIRINA [Concomitant]
     Active Substance: ASPIRIN
     Indication: PRODUCT USED FOR UNKNOWN INDICATION
     Dosage: 100 MG, UNK, 1825 DAYS
     Route: 065
  5. GABAPENTINE [Concomitant]
     Active Substance: GABAPENTIN
     Indication: PRODUCT USED FOR UNKNOWN INDICATION
     Dosage: 400 MG, UNK, 817 DAYS
     Route: 065
  6. OMEPRAZOL//OMEPRAZOLE [Concomitant]
     Indication: PRODUCT USED FOR UNKNOWN INDICATION
     Dosage: 20 MG, UNK, 1825 DAYS
     Route: 065

REACTIONS (4)
  - Chills [Recovered/Resolved]
  - Injection site pain [Unknown]
  - Localised infection [Recovered/Resolved]
  - Injection site erythema [Unknown]

NARRATIVE: CASE EVENT DATE: 20150310
